FAERS Safety Report 6412739-7 (Version None)
Quarter: 2009Q4

REPORT INFORMATION
  Report Type: 
  Country: None (occurrence: None)
  Receive Date: 20091023
  Receipt Date: 20091013
  Transmission Date: 20100525
  Serious: Yes (Life-Threatening)
  Sender: FDA-Public Use
  Company Number: JP-WYE-G04561809

PATIENT
  Sex: Male

DRUGS (2)
  1. LANSOPRAZOLE [Suspect]
     Indication: GASTRIC ULCER
     Route: 048
     Dates: start: 20090930, end: 20090930
  2. MUCOSTA [Concomitant]
     Indication: GASTRIC ULCER
     Dosage: UNKNOWN
     Route: 048
     Dates: start: 20090929

REACTIONS (1)
  - ANAPHYLACTIC REACTION [None]
